FAERS Safety Report 6127026-4 (Version None)
Quarter: 2009Q1

REPORT INFORMATION
  Report Type: 
  Country: None (occurrence: None)
  Receive Date: 20090320
  Receipt Date: 20090313
  Transmission Date: 20090719
  Serious: Yes (Other)
  Sender: FDA-Public Use
  Company Number: TR-WYE-H08605409

PATIENT
  Sex: Female

DRUGS (1)
  1. PREMARIN [Suspect]
     Indication: SURGERY
     Dosage: UNKNOWN
     Route: 065
     Dates: start: 19950101, end: 20050101

REACTIONS (1)
  - NEOPLASM MALIGNANT [None]
